FAERS Safety Report 6267471-X (Version None)
Quarter: 2009Q3

REPORT INFORMATION
  Report Type: 
  Country: None (occurrence: None)
  Receive Date: 20090714
  Receipt Date: 20090706
  Transmission Date: 20100115
  Serious: Yes (Other)
  Sender: FDA-Public Use
  Company Number: EG-AVENTIS-200916762GDDC

PATIENT
  Age: 64 Year
  Sex: Male

DRUGS (1)
  1. LANTUS [Suspect]
     Indication: TYPE 2 DIABETES MELLITUS
     Dates: start: 20060101

REACTIONS (4)
  - ABDOMINAL PAIN [None]
  - ASCITES [None]
  - PANCREATIC CARCINOMA [None]
  - WEIGHT DECREASED [None]
